FAERS Safety Report 15861600 (Version 1)
Quarter: 2019Q1

REPORT INFORMATION
  Report Type: Spontaneous
  Country: FR (occurrence: FR)
  Receive Date: 20190124
  Receipt Date: 20190124
  Transmission Date: 20190417
  Serious: Yes (Hospitalization)
  Sender: FDA-Public Use
  Company Number: FR-ACCORD-103333

PATIENT
  Age: 68 Year
  Sex: Female
  Weight: 48.1 kg

DRUGS (2)
  1. CARBOPLATINE ACCORD [Suspect]
     Active Substance: CARBOPLATIN
     Indication: LUNG ADENOCARCINOMA
     Dosage: ALSO RECEIVED 750 MG FROM28-MAY-2018 TO 10-JUL-2018
     Route: 042
     Dates: start: 20180528, end: 20180710
  2. ALIMTA [Suspect]
     Active Substance: PEMETREXED DISODIUM
     Indication: LUNG ADENOCARCINOMA
     Dosage: ALSO RECEIVED 750 MG FROM28-MAY-2018 TO 10-JUL-2018
     Route: 042
     Dates: start: 20180528, end: 20180710

REACTIONS (4)
  - Abdominal pain [Recovered/Resolved]
  - Diarrhoea [Recovered/Resolved]
  - Vomiting [Recovered/Resolved]
  - Pyrexia [Recovered/Resolved]

NARRATIVE: CASE EVENT DATE: 20180728
